FAERS Safety Report 8745941 (Version 5)
Quarter: 2013Q1

REPORT INFORMATION
  Report Type: Spontaneous
  Country: CA (occurrence: None)
  Receive Date: 20120727
  Receipt Date: 20121105
  Transmission Date: 20140127
  Serious: Yes (Other)
  Sender: FDA-Public Use
  Company Number: US-2012-10945

PATIENT
  Age: 44 Year
  Sex: Female

DRUGS (5)
  1. TOLVAPTAN [Suspect]
     Indication: CONGENITAL CYSTIC KIDNEY DISEASE
     Dosage: 60 MG MILLIGRAM(S), DAILY DOSE, ORAL
     Route: 048
     Dates: start: 20111013, end: 20120709
  2. PERINDOPRIL (PERINDOPRIL ERBUMINE) [Concomitant]
  3. ACETAMINOPHEN (PARACETAMOL) [Concomitant]
  4. FENTANYL (FENTANYL CITRATE) [Concomitant]
  5. VERSED (MIDAZOLAM HYDROCHLORIDE) [Concomitant]

REACTIONS (4)
  - Blood alkaline phosphatase increased [None]
  - Gamma-glutamyltransferase increased [None]
  - Hepatic cyst [None]
  - Hepatomegaly [None]
